FAERS Safety Report 11222802 (Version 1)
Quarter: 2015Q2

REPORT INFORMATION
  Report Type: Spontaneous
  Country: US (occurrence: US)
  Receive Date: 20150626
  Receipt Date: 20150626
  Transmission Date: 20150821
  Serious: Yes (Other)
  Sender: FDA-Public Use
  Company Number: US-PFIZER INC-2015209800

PATIENT
  Age: 54 Year
  Sex: Male

DRUGS (5)
  1. MOBIC [Concomitant]
     Active Substance: MELOXICAM
     Dosage: 15 MG, 1X/DAY
  2. ZANAFLEX [Concomitant]
     Active Substance: TIZANIDINE HYDROCHLORIDE
     Dosage: 2 MG, AS NEEDED 4X/DAY
  3. MIRALAX [Concomitant]
     Active Substance: POLYETHYLENE GLYCOL 3350
     Dosage: UNK, AS NEEDED
  4. LYRICA [Suspect]
     Active Substance: PREGABALIN
     Dosage: 75 MG, 3X/DAY
  5. MORPHINE SULFATE. [Concomitant]
     Active Substance: MORPHINE SULFATE
     Dosage: 30 MG, AS NEEDED EVERY 6 HOURS

REACTIONS (6)
  - Sciatica [Unknown]
  - Intervertebral disc degeneration [Unknown]
  - Back pain [Unknown]
  - Post laminectomy syndrome [Unknown]
  - Spinal osteoarthritis [Unknown]
  - Intervertebral disc displacement [Unknown]
